FAERS Safety Report 19020518 (Version 1)
Quarter: 2021Q1

REPORT INFORMATION
  Report Type: Spontaneous
  Country: US (occurrence: US)
  Receive Date: 20210317
  Receipt Date: 20210317
  Transmission Date: 20210420
  Serious: No
  Sender: FDA-Public Use
  Company Number: US-TEVA-2021-US-1890303

PATIENT
  Sex: Female

DRUGS (4)
  1. QVAR REDIHALER [Suspect]
     Active Substance: BECLOMETHASONE DIPROPIONATE
     Indication: ASTHMA
     Dosage: 2 INHALATIONS TWICE DAILY
     Route: 055
  2. ACCOLATE [Concomitant]
     Active Substance: ZAFIRLUKAST
     Dosage: 40 MILLIGRAM DAILY;
     Route: 065
  3. CLARINEX [Concomitant]
     Active Substance: DESLORATADINE
     Dosage: 500 MILLIGRAM DAILY;
     Route: 065
  4. NEXIUM [Concomitant]
     Active Substance: ESOMEPRAZOLE MAGNESIUM
     Indication: GASTROOESOPHAGEAL REFLUX DISEASE
     Route: 065

REACTIONS (4)
  - Oral candidiasis [Unknown]
  - Device delivery system issue [Unknown]
  - Dyspnoea [Unknown]
  - Cough [Unknown]
